FAERS Safety Report 7586657-5 (Version None)
Quarter: 2011Q3

REPORT INFORMATION
  Report Type: 
  Country: None (occurrence: None)
  Receive Date: 20110701
  Receipt Date: 20110622
  Transmission Date: 20111222
  Serious: Yes (Hospitalization, Other)
  Sender: FDA-Public Use
  Company Number: US-ELI_LILLY_AND_COMPANY-US201106006831

PATIENT
  Age: 46 Year
  Sex: Male

DRUGS (7)
  1. BYETTA [Suspect]
     Indication: TYPE 2 DIABETES MELLITUS
     Dosage: 10 UG, BID
     Route: 058
     Dates: end: 20110518
  2. POTASSIUM [Concomitant]
     Dosage: UNK
  3. METFORMIN HCL [Concomitant]
     Dosage: 1000 MG, BID
  4. SKELAXIN [Concomitant]
     Dosage: UNK
  5. PROTONIX [Concomitant]
     Dosage: UNK
  6. VICODIN [Concomitant]
     Dosage: UNK
  7. Q10 [Concomitant]

REACTIONS (3)
  - CHEST PAIN [None]
  - PANCREATITIS ACUTE [None]
  - DRUG SCREEN POSITIVE [None]
